FAERS Safety Report 8513879-9 (Version None)
Quarter: 2012Q3

REPORT INFORMATION
  Report Type: 
  Country: None (occurrence: None)
  Receive Date: 20120717
  Receipt Date: 20120705
  Transmission Date: 20120928
  Serious: No
  Sender: FDA-Public Use
  Company Number: US-BAYER-2012-067626

PATIENT
  Sex: Female

DRUGS (2)
  1. MIRENA [Suspect]
     Dosage: 20 MCG/24HR, CONT
     Route: 015
     Dates: start: 20120401
  2. COUMADIN [Concomitant]
     Indication: PULMONARY EMBOLISM

REACTIONS (3)
  - DEPRESSION [None]
  - EMOTIONAL DISORDER [None]
  - CRYING [None]
